FAERS Safety Report 5370275-3 (Version None)
Quarter: 2007Q2

REPORT INFORMATION
  Report Type: 
  Country: None (occurrence: None)
  Receive Date: 20070625
  Receipt Date: 20070625
  Transmission Date: 20071010
  Serious: Yes (Other)
  Sender: FDA-Public Use
  Company Number: None

PATIENT

DRUGS (2)
  1. 5 FU CHEMO [Suspect]
     Indication: RECTAL CANCER
     Dates: end: 20070529
  2. AMIFOSTINE 500MGM SQ [Suspect]
     Indication: RECTAL CANCER
     Dosage: 500 MGG SQ
     Route: 058
     Dates: end: 20070521

REACTIONS (2)
  - RASH [None]
  - URTICARIA [None]
